FAERS Safety Report 21671697 (Version 2)
Quarter: 2022Q4

REPORT INFORMATION
  Report Type: Spontaneous
  Country: US (occurrence: US)
  Receive Date: 20221202
  Receipt Date: 20221212
  Transmission Date: 20230112
  Serious: No
  Sender: FDA-Public Use
  Company Number: US-GBT-015459

PATIENT
  Sex: Male

DRUGS (1)
  1. OXBRYTA [Suspect]
     Active Substance: VOXELOTOR
     Indication: Sickle cell disease
     Route: 050
     Dates: start: 20220722

REACTIONS (7)
  - Vomiting [Recovered/Resolved]
  - Abdominal pain upper [Recovered/Resolved]
  - Pain [Recovering/Resolving]
  - Diarrhoea [Recovered/Resolved]
  - Product dose omission issue [Unknown]
  - Nausea [Recovered/Resolved]
  - Fatigue [Recovered/Resolved]

NARRATIVE: CASE EVENT DATE: 20220101
